FAERS Safety Report 5520296-2 (Version None)
Quarter: 2007Q4

REPORT INFORMATION
  Report Type: 
  Country: None (occurrence: None)
  Receive Date: 20071115
  Receipt Date: 20071115
  Transmission Date: 20080405
  Serious: Yes (Hospitalization)
  Sender: FDA-Public Use
  Company Number: None

PATIENT
  Sex: Female
  Weight: 58 kg

DRUGS (3)
  1. ERBITUX [Suspect]
     Indication: TONGUE NEOPLASM MALIGNANT STAGE UNSPECIFIED
     Dosage: 382MG WEEKLY IV
     Route: 042
     Dates: start: 20070820, end: 20071030
  2. TAXOL [Suspect]
     Indication: TONGUE NEOPLASM MALIGNANT STAGE UNSPECIFIED
     Dosage: 30 MG WEEKLY IV
     Route: 042
     Dates: start: 20070820, end: 20071030
  3. CARBOPLATIN [Suspect]
     Indication: TONGUE NEOPLASM MALIGNANT STAGE UNSPECIFIED
     Dosage: 42 MG WEEKLY IV
     Route: 042
     Dates: start: 20070820, end: 20071030

REACTIONS (7)
  - ANXIETY [None]
  - DISEASE RECURRENCE [None]
  - ORAL PAIN [None]
  - PYREXIA [None]
  - RADIATION MUCOSITIS [None]
  - RASH [None]
  - SKIN EXFOLIATION [None]
